FAERS Safety Report 4388747-7 (Version None)
Quarter: 2004Q3

REPORT INFORMATION
  Report Type: 
  Country: None (occurrence: None)
  Receive Date: 20040701
  Receipt Date: 20030120
  Transmission Date: 20050211
  Serious: Yes (Hospitalization, Other)
  Sender: FDA-Public Use
  Company Number: US-GLAXOSMITHKLINE-B0290477A

PATIENT
  Age: 77 Year
  Sex: Male

DRUGS (3)
  1. CEFTAZIDIME SODIUM [Suspect]
     Indication: MENINGITIS
     Dosage: 2G THREE TIMES PER DAY
     Route: 042
  2. VANCOMYCIN HYDROCHLORIDE [Concomitant]
     Indication: MENINGITIS
     Dosage: 1G TWICE PER DAY
     Route: 042
  3. GENTAMYCIN SULPHATE [Concomitant]
     Indication: MENINGITIS
     Dosage: 160MG PER DAY
     Route: 042

REACTIONS (5)
  - COMA [None]
  - RASH MACULO-PAPULAR [None]
  - SKIN DESQUAMATION [None]
  - SKIN REACTION [None]
  - STATUS EPILEPTICUS [None]
